FAERS Safety Report 6147132-8 (Version None)
Quarter: 2009Q2

REPORT INFORMATION
  Report Type: 
  Country: None (occurrence: None)
  Receive Date: 20090406
  Receipt Date: 20090325
  Transmission Date: 20091009
  Serious: Yes (Other)
  Sender: FDA-Public Use
  Company Number: IMP_04323_2009

PATIENT
  Age: 45 Year
  Sex: Female

DRUGS (1)
  1. BUDEPRION (NOT SPECIFIED) [Suspect]
     Indication: DRUG USE FOR UNKNOWN INDICATION
     Dosage: 150 MG
     Dates: start: 20090301

REACTIONS (5)
  - ANXIETY [None]
  - ASTHENIA [None]
  - EYE MOVEMENT DISORDER [None]
  - VISION BLURRED [None]
  - WITHDRAWAL SYNDROME [None]
